FAERS Safety Report 9785928 (Version 2)
Quarter: 2013Q4

REPORT INFORMATION
  Report Type: Report from Study
  Country: GB (occurrence: GB)
  Receive Date: 20131227
  Receipt Date: 20131227
  Transmission Date: 20140711
  Serious: Yes (Hospitalization)
  Sender: FDA-Public Use
  Company Number: GB-ROCHE-1317281

PATIENT
  Age: 48 Year
  Sex: 0
  Weight: 91 kg

DRUGS (1)
  1. TRASTUZUMAB EMTANSINE [Suspect]
     Indication: BREAST CANCER
     Dosage: LAST DOSE PRIOR TO SAE ON 21/NOV/2013
     Route: 042
     Dates: start: 20131031

REACTIONS (1)
  - Pleural effusion [Not Recovered/Not Resolved]
